FAERS Safety Report 8923814 (Version 2)
Quarter: 2013Q3

REPORT INFORMATION
  Report Type: Spontaneous
  Country: US (occurrence: US)
  Receive Date: 20121126
  Receipt Date: 20130711
  Transmission Date: 20140515
  Serious: Yes (Other)
  Sender: FDA-Public Use
  Company Number: US-BAYER-2012-122004

PATIENT
  Age: 39 Year
  Sex: Female
  Weight: 76.19 kg

DRUGS (6)
  1. YASMIN [Suspect]
     Indication: POLYCYSTIC OVARIES
  2. YAZ [Suspect]
  3. OCELLA [Suspect]
  4. GIANVI [Suspect]
  5. VICODIN [Concomitant]
     Dosage: UNK UNK, PRN
  6. ADVIL [Concomitant]
     Dosage: UNK UNK, PRN

REACTIONS (7)
  - Pulmonary embolism [None]
  - Pulmonary infarction [Recovered/Resolved]
  - Pulmonary hypertension [None]
  - Off label use [None]
  - Pain [None]
  - Anxiety [None]
  - Injury [None]
